FAERS Safety Report 4956520-4 (Version None)
Quarter: 2006Q1

REPORT INFORMATION
  Report Type: 
  Country: None (occurrence: None)
  Receive Date: 20060328
  Receipt Date: 20060328
  Transmission Date: 20060701
  Serious: Yes (Other)
  Sender: FDA-Public Use
  Company Number: None

PATIENT
  Sex: Female
  Weight: 69.4003 kg

DRUGS (2)
  1. DURAGESIC-100 [Suspect]
     Indication: FACET JOINT SYNDROME
     Dosage: 100 MCG Q 72 H
     Dates: start: 20040524
  2. DURAGESIC-100 [Suspect]
     Indication: FIBROMYALGIA
     Dosage: 100 MCG Q 72 H
     Dates: start: 20040524

REACTIONS (3)
  - DRUG INEFFECTIVE [None]
  - INADEQUATE ANALGESIA [None]
  - PHARMACEUTICAL PRODUCT COMPLAINT [None]
